FAERS Safety Report 10195116 (Version 3)
Quarter: 2014Q2

REPORT INFORMATION
  Report Type: Spontaneous
  Country: JP (occurrence: JP)
  Receive Date: 20140526
  Receipt Date: 20140630
  Transmission Date: 20141212
  Serious: Yes (Hospitalization, Other)
  Sender: FDA-Public Use
  Company Number: US-ASTRAZENECA-2014SE36155

PATIENT
  Age: 24191 Day
  Sex: Male
  Weight: 62 kg

DRUGS (3)
  1. BLOPRESS [Suspect]
     Indication: HYPERTENSION
     Route: 048
     Dates: start: 2009
  2. FEBURIC [Suspect]
     Indication: HYPERURICAEMIA
     Route: 048
     Dates: start: 20131218, end: 20140411
  3. URSO [Concomitant]
     Indication: CHRONIC HEPATITIS
     Route: 048
     Dates: start: 2009

REACTIONS (1)
  - Rhabdomyolysis [Recovering/Resolving]
